FAERS Safety Report 9321783 (Version 3)
Quarter: 2013Q3

REPORT INFORMATION
  Report Type: Report from Study
  Country: US (occurrence: US)
  Receive Date: 20130531
  Receipt Date: 20130717
  Transmission Date: 20140515
  Serious: Yes (Life-Threatening, Other)
  Sender: FDA-Public Use
  Company Number: US-MERCK-1305USA017500

PATIENT
  Age: 14 Year
  Sex: Male
  Weight: 90.79 kg

DRUGS (3)
  1. ASENAPINE MALEATE-BIPOLAR DISORDER [Suspect]
     Indication: BIPOLAR I DISORDER
     Dosage: 2.5 MG, BID
     Route: 060
     Dates: start: 20130104, end: 20130502
  2. SAPHRIS [Concomitant]
     Indication: BIPOLAR I DISORDER
     Dosage: 10.0 MG, QD
     Route: 060
     Dates: start: 20130507, end: 20130525
  3. VYVANSE [Concomitant]
     Indication: ATTENTION DEFICIT/HYPERACTIVITY DISORDER
     Dosage: 60 MG, QD
     Route: 048
     Dates: start: 20130507

REACTIONS (3)
  - Drug hypersensitivity [Recovered/Resolved]
  - Swollen tongue [Recovered/Resolved]
  - Accidental overdose [Recovered/Resolved]
